FAERS Safety Report 7409242-4 (Version None)
Quarter: 2011Q2

REPORT INFORMATION
  Report Type: 
  Country: None (occurrence: None)
  Receive Date: 20110412
  Receipt Date: 20110407
  Transmission Date: 20111010
  Serious: Yes (Death, Hospitalization)
  Sender: FDA-Public Use
  Company Number: A0886885A

PATIENT
  Sex: Male
  Weight: 114.1 kg

DRUGS (9)
  1. AVANDIA [Suspect]
     Indication: DIABETES MELLITUS
     Dosage: 4MG PER DAY
     Route: 048
     Dates: start: 20030101, end: 20100318
  2. COREG [Concomitant]
  3. ASPIRIN [Concomitant]
  4. ATENOLOL [Concomitant]
  5. IMDUR [Concomitant]
  6. ZOCOR [Concomitant]
  7. MAVIK [Concomitant]
  8. NIASPAN [Concomitant]
  9. VYTORIN [Concomitant]

REACTIONS (11)
  - SUPRAVENTRICULAR TACHYCARDIA [None]
  - ATRIOVENTRICULAR BLOCK [None]
  - CARDIAC DISORDER [None]
  - IMPLANTABLE DEFIBRILLATOR INSERTION [None]
  - RENAL FAILURE CHRONIC [None]
  - VASCULAR GRAFT [None]
  - CARDIAC PACEMAKER INSERTION [None]
  - DEATH [None]
  - AORTIC ANEURYSM [None]
  - ISCHAEMIC CARDIOMYOPATHY [None]
  - CARDIAC FAILURE CONGESTIVE [None]
